FAERS Safety Report 9247803 (Version 1)
Quarter: 2013Q1

REPORT INFORMATION
  Report Type: Spontaneous
  Country: US (occurrence: None)
  Receive Date: 20130305
  Receipt Date: 20130305
  Transmission Date: 20140127
  Serious: Yes (Other)
  Sender: FDA-Public Use
  Company Number: 163-21880-12093299

PATIENT
  Age: 61 Year
  Sex: Female

DRUGS (19)
  1. REVLIMID [Suspect]
     Indication: PLASMA CELL MYELOMA
  2. VITAMIN B COMPLEX WITH C [Concomitant]
  3. DEXAMETHASONE (DEXAMETHASONE) [Concomitant]
  4. AVELOX [Concomitant]
  5. METOCLOPRAMIDE (METOCLOPRAMIDE) [Concomitant]
  6. AMOXICILLIN (AMOXICILLIN) [Concomitant]
  7. FLUOXETINE (FLUOXETINE) [Concomitant]
  8. LORAZEPAM (LORAZEPAM) [Concomitant]
  9. ONDANSETRON (ONDANSETRON) [Concomitant]
  10. ACYLOVIR (ACICLOVIR) [Concomitant]
  11. PROCHLORPERAZINE (PROCHLORPERAZINE) [Concomitant]
  12. ZOLIPIDEM (ZOLPIDEM) [Concomitant]
  13. ENOXAPARIN (ENOXAPARIN) [Concomitant]
  14. CEFPODOXIME (CEFPODOXIME) [Concomitant]
  15. CALCIUM +D (OS-CAL) [Concomitant]
  16. LOTEMAX (LOTEPREDNOL ETABONATE) [Concomitant]
  17. BESIVANCE (BESIFLOXACIN) [Concomitant]
  18. OXYCODONE (OXYCODONE) [Concomitant]
  19. BROMDAY (BROMFENAC SODIUM) [Concomitant]

REACTIONS (1)
  - Thrombosis [None]
